FAERS Safety Report 21201045 (Version 2)
Quarter: 2022Q3

REPORT INFORMATION
  Report Type: Other
  Country: None (occurrence: US)
  Receive Date: 20220811
  Receipt Date: 20220816
  Transmission Date: 20221027
  Serious: Yes (Death)
  Sender: FDA-Public Use
  Company Number: US-Mission Pharmacal Company-2131723

PATIENT
  Age: 80 Year
  Sex: Male

DRUGS (4)
  1. THIOLA EC [Suspect]
     Active Substance: TIOPRONIN
     Indication: Cystinuria
     Route: 048
     Dates: start: 20191129, end: 20220708
  2. FUROSEMIDE [Concomitant]
     Active Substance: FUROSEMIDE
     Dates: end: 20220708
  3. SPIRONOLACTONE [Concomitant]
     Active Substance: SPIRONOLACTONE
     Dates: end: 20220708
  4. METOPROLOL TARTRATE [Concomitant]
     Active Substance: METOPROLOL TARTRATE
     Dates: end: 20220708

REACTIONS (2)
  - Hepatic failure [Fatal]
  - Renal failure [Fatal]
